FAERS Safety Report 20233887 (Version 1)
Quarter: 2021Q4

REPORT INFORMATION
  Report Type: Spontaneous
  Country: US (occurrence: US)
  Receive Date: 20211227
  Receipt Date: 20211227
  Transmission Date: 20220303
  Serious: Yes (Other)
  Sender: FDA-Public Use
  Company Number: US-GW PHARMA-202112USGW06333

PATIENT

DRUGS (7)
  1. EPIDIOLEX [Suspect]
     Active Substance: CANNABIDIOL
     Indication: Epilepsy
     Dosage: 20.66 MG/KG/DAY, 250 MILLIGRAM, BID (FIRST SHIPPED ON 25-FEB-2020)
     Route: 048
     Dates: start: 202002
  2. EPIDIOLEX [Suspect]
     Active Substance: CANNABIDIOL
     Indication: Epilepsy
  3. EPIDIOLEX [Suspect]
     Active Substance: CANNABIDIOL
     Indication: Epilepsy
  4. EPIDIOLEX [Suspect]
     Active Substance: CANNABIDIOL
     Indication: Idiopathic generalised epilepsy
  5. EPIDIOLEX [Suspect]
     Active Substance: CANNABIDIOL
     Indication: Encephalopathy
  6. INFLUENZA VIRUS VACCINE [Suspect]
     Active Substance: INFLUENZA VIRUS VACCINE
     Indication: Immunisation
     Dosage: UNK
     Route: 065
     Dates: start: 20211115, end: 20211115
  7. DIACOMIT [Concomitant]
     Active Substance: STIRIPENTOL
     Indication: Product used for unknown indication
     Dosage: UNK
     Route: 065
     Dates: start: 20210303

REACTIONS (6)
  - Allergy to vaccine [Unknown]
  - Urticaria [Unknown]
  - Lip swelling [Unknown]
  - Eye swelling [Unknown]
  - Seizure [Unknown]
  - Pyrexia [Unknown]

NARRATIVE: CASE EVENT DATE: 20210101
